FAERS Safety Report 6237389-7 (Version None)
Quarter: 2009Q2

REPORT INFORMATION
  Report Type: 
  Country: None (occurrence: None)
  Receive Date: 20090619
  Receipt Date: 20090616
  Transmission Date: 20091009
  Serious: Yes (Hospitalization, Other)
  Sender: FDA-Public Use
  Company Number: US-AMGEN-US326312

PATIENT
  Sex: Female
  Weight: 46.8 kg

DRUGS (10)
  1. ARANESP [Suspect]
     Indication: RENAL FAILURE CHRONIC
     Route: 058
     Dates: start: 20041110
  2. TYLENOL (CAPLET) [Concomitant]
  3. FUROSEMIDE [Concomitant]
  4. XANAX [Concomitant]
  5. FERROUS SULFATE TAB [Concomitant]
  6. LOVASTATIN [Concomitant]
  7. OMEPRAZOLE [Concomitant]
  8. CIPRO [Concomitant]
  9. DOXEPIN [Concomitant]
  10. OXAPROZIN [Concomitant]

REACTIONS (4)
  - ANAEMIA [None]
  - ARTHRALGIA [None]
  - GASTRITIS [None]
  - THROMBOCYTOPENIA [None]
